FAERS Safety Report 4761344-7 (Version None)
Quarter: 2005Q3

REPORT INFORMATION
  Report Type: 
  Country: None (occurrence: None)
  Receive Date: 20050901
  Receipt Date: 20050406
  Transmission Date: 20060218
  Serious: Yes (Hospitalization)
  Sender: FDA-Public Use
  Company Number: 2005-FR-00256

PATIENT
  Age: 60 Year
  Sex: Male

DRUGS (5)
  1. ASPIRIN [Suspect]
     Indication: CEREBROVASCULAR ACCIDENT
     Dosage: 75 MG OD
     Route: 048
     Dates: start: 20050305
  2. METRONIDAZOLE [Concomitant]
  3. PRAVASTATIN [Concomitant]
  4. CARBAMAZEPINE [Concomitant]
  5. LEVETIRACETAM [Concomitant]

REACTIONS (7)
  - COLITIS ULCERATIVE [None]
  - DIARRHOEA [None]
  - ERYTHEMA [None]
  - GASTRIC ULCER [None]
  - HAEMATOCHEZIA [None]
  - MALAISE [None]
  - OESOPHAGITIS [None]
